FAERS Safety Report 20016535 (Version 1)
Quarter: 2021Q4

REPORT INFORMATION
  Report Type: Spontaneous
  Country: US (occurrence: None)
  Receive Date: 20211104
  Receipt Date: 20211104
  Transmission Date: 20220303
  Serious: No
  Sender: FDA-Public Use
  Company Number: None

PATIENT
  Age: 65 Year
  Sex: Female

DRUGS (3)
  1. DOXYCYCLINE HYCLATE [Suspect]
     Active Substance: DOXYCYCLINE HYCLATE
     Indication: Postoperative care
     Dosage: FREQUENCY : TWICE A DAY;?
     Route: 048
     Dates: start: 20211028, end: 20211029
  2. PERCOCET [Concomitant]
     Active Substance: ACETAMINOPHEN\OXYCODONE HYDROCHLORIDE
     Dates: start: 20211028
  3. zofran 4 [Concomitant]

REACTIONS (1)
  - Erythema [None]

NARRATIVE: CASE EVENT DATE: 20211029
